FAERS Safety Report 4388839-2 (Version None)
Quarter: 2004Q3

REPORT INFORMATION
  Report Type: 
  Country: None (occurrence: None)
  Receive Date: 20040702
  Receipt Date: 20040622
  Transmission Date: 20050211
  Serious: Yes (Other)
  Sender: FDA-Public Use
  Company Number: PHBS2004JP08306

PATIENT
  Age: 8 Year
  Sex: Female

DRUGS (2)
  1. VOLTAREN [Suspect]
     Dosage: 12.5 MG/DAY
     Route: 054
     Dates: start: 20040601, end: 20040601
  2. AMIKACIN SULFATE [Concomitant]
     Dates: start: 20040601, end: 20040601

REACTIONS (3)
  - BLOOD CREATINE PHOSPHOKINASE INCREASED [None]
  - MYOGLOBINURIA [None]
  - RHABDOMYOLYSIS [None]
